FAERS Safety Report 13452020 (Version 2)
Quarter: 2017Q2

REPORT INFORMATION
  Report Type: Spontaneous
  Country: NL (occurrence: NL)
  Receive Date: 20170418
  Receipt Date: 20170427
  Transmission Date: 20170830
  Serious: Yes (Other)
  Sender: FDA-Public Use
  Company Number: NL-AMGEN-NLDSP2017056522

PATIENT
  Age: 69 Year
  Sex: Male
  Weight: 90 kg

DRUGS (2)
  1. CARBASALATE CALCIUM [Concomitant]
     Active Substance: CARBASPIRIN
     Dosage: 100 MG, DQ, DD1
  2. REPATHA [Suspect]
     Active Substance: EVOLOCUMAB
     Indication: PRODUCT USED FOR UNKNOWN INDICATION
     Dosage: 140 MG/ML (1 ML), UNK
     Route: 065
     Dates: start: 20170307

REACTIONS (8)
  - Disturbance in attention [Not Recovered/Not Resolved]
  - Suicidal ideation [Not Recovered/Not Resolved]
  - Nervousness [Not Recovered/Not Resolved]
  - Depressed mood [Unknown]
  - Nightmare [Not Recovered/Not Resolved]
  - Neurological symptom [Not Recovered/Not Resolved]
  - Confusional state [Not Recovered/Not Resolved]
  - Derealisation [Unknown]

NARRATIVE: CASE EVENT DATE: 201703
